FAERS Safety Report 10264483 (Version 2)
Quarter: 2014Q3

REPORT INFORMATION
  Report Type: Spontaneous
  Country: US (occurrence: None)
  Receive Date: 20140624
  Receipt Date: 20140806
  Transmission Date: 20150326
  Serious: Yes (Hospitalization, Other)
  Sender: FDA-Public Use
  Company Number: 2014AP003469

PATIENT
  Age: 54 Year
  Sex: Female

DRUGS (56)
  1. TRAZODONE [Concomitant]
     Active Substance: TRAZODONE HYDROCHLORIDE
  2. SEROQUEL [Concomitant]
     Active Substance: QUETIAPINE FUMARATE
  3. FOSINOPRIL (FOSINOPRIL) [Concomitant]
  4. VERSED (MIDAZOLAM HYDROCHLORIDE) [Concomitant]
  5. COUMADIN [Concomitant]
     Active Substance: WARFARIN SODIUM
  6. CALCIUM (CALCIUM) [Concomitant]
     Active Substance: CALCIUM
  7. WARFARIN SODIUM (WARFARIN SODIUM) [Concomitant]
     Active Substance: WARFARIN SODIUM
  8. TOPAMAX [Concomitant]
     Active Substance: TOPIRAMATE
  9. NAPROSYN (NAPROXEN) [Concomitant]
  10. XANAX [Concomitant]
     Active Substance: ALPRAZOLAM
  11. PROTONIX [Concomitant]
     Active Substance: PANTOPRAZOLE SODIUM
  12. TYLENOL [Concomitant]
     Active Substance: ACETAMINOPHEN
  13. ZOFRAN (ONDANSETRON) [Concomitant]
  14. PROPOFOL (PROPOFOL) [Concomitant]
     Active Substance: PROPOFOL
  15. IMITREX [Concomitant]
     Active Substance: SUMATRIPTAN\SUMATRIPTAN SUCCINATE
  16. PHENERGAN [Concomitant]
     Active Substance: PROMETHAZINE HYDROCHLORIDE
  17. CARVEDILOL (CARVEDILOL) [Concomitant]
     Active Substance: CARVEDILOL
  18. PAXIL [Suspect]
     Active Substance: PAROXETINE HYDROCHLORIDE
     Indication: DEPRESSION
     Route: 048
     Dates: start: 200401, end: 201008
  19. VIVELLE (ESTRADIOL) [Concomitant]
  20. VIVELLE (ESTRADIOL) [Concomitant]
  21. ZYRTEC [Concomitant]
     Active Substance: CETIRIZINE HYDROCHLORIDE
  22. ENALAPRIL (ENALAPRIL) [Concomitant]
     Active Substance: ENALAPRIL
  23. KLONOPIN (CLONAZEPAM) [Concomitant]
  24. VITAMIN D (ERGOCALCIFEROL) [Concomitant]
     Active Substance: ERGOCALCIFEROL
  25. CEFTIN (CEFUROXIME AXETIL) [Concomitant]
  26. VITAMIN D3 [Concomitant]
     Active Substance: CHOLECALCIFEROL
  27. INDERAL [Concomitant]
     Active Substance: PROPRANOLOL HYDROCHLORIDE
  28. LOMOTIL (ATROPINE SULFATE, DIPHENOXYLATE HYDROCHLORIDE) [Concomitant]
  29. LEXAPRO [Concomitant]
     Active Substance: ESCITALOPRAM OXALATE
  30. FENTANYL (FENTANYL) [Concomitant]
     Active Substance: FENTANYL
  31. LEVSIN (HYOSCYAMINE SULFATE) [Concomitant]
  32. CARVEDILOL (CARVEDILOL) [Concomitant]
     Active Substance: CARVEDILOL
  33. FLONASE [Concomitant]
     Active Substance: FLUTICASONE PROPIONATE
  34. CIPRO [Concomitant]
     Active Substance: CIPROFLOXACIN HYDROCHLORIDE
  35. AMLODIPINE BESYLATE (AMODIPINE BESILATE) [Concomitant]
  36. GUAIFENESIN (GUAIFENESIN) [Concomitant]
  37. GABAPENTIN (GABAPENTIN) [Concomitant]
     Active Substance: GABAPENTIN
  38. NAPROSYN (NAPROXEN) [Concomitant]
  39. FLONASE [Concomitant]
     Active Substance: FLUTICASONE PROPIONATE
  40. AUGMENTIN (AMOXICILLIN SODIUM, CLAVULANATE POTASSIUM) [Concomitant]
  41. ZITHROMAX [Concomitant]
     Active Substance: AZITHROMYCIN DIHYDRATE
  42. PREMARIN (ESTROGENS CONJUGATED) [Concomitant]
  43. FRAGMIN (DALTEPARIN SODIUM) [Concomitant]
  44. ROSUVASTATIN (ROSUVASTATIN) [Concomitant]
     Active Substance: ROSUVASTATIN
  45. INFLUENZA A (H1N1) MONOVALENT VACCINE (A/H1N1 INFLUENZA PANDEMIC VACCINE) [Concomitant]
  46. PERCOCET (OXYCODONE HYDROCHLORIDE, OXYCODONE TEREPHTHALATE, PARACETAMOL) [Concomitant]
  47. PROMETHAZINE HCL (PROMETHAZINE HYDROCHLORIDE) [Concomitant]
  48. LISINOPRIL (LISINOPRIL) [Concomitant]
     Active Substance: LISINOPRIL
  49. CLIMARA (ESTRADIOL) [Concomitant]
     Active Substance: ESTRADIOL
  50. ASPIRIN (ACETYLSALICYLIC ACID) [Concomitant]
     Active Substance: ASPIRIN
  51. PRAVASTATIN ([PRAVASTATIN) [Concomitant]
  52. OMEPRAZOLE (OMEPRAZOLE) [Concomitant]
     Active Substance: OMEPRAZOLE
  53. ALLEGRA ALLERGY (FEXOFENADINE HYDROCHLORIDE) [Concomitant]
  54. PHENERGAN [Concomitant]
     Active Substance: PROMETHAZINE HYDROCHLORIDE
  55. AZITHROMYCIN [Concomitant]
     Active Substance: AZITHROMYCIN ANHYDROUS
  56. NASONEX [Concomitant]
     Active Substance: MOMETASONE FUROATE

REACTIONS (10)
  - Mitral valve incompetence [None]
  - Arteriosclerosis coronary artery [None]
  - Cardiac failure congestive [None]
  - Anxiety [None]
  - Syncope [None]
  - Emotional distress [None]
  - Physical disability [None]
  - Weight increased [None]
  - Aortic valve incompetence [None]
  - Mitral valve stenosis [None]

NARRATIVE: CASE EVENT DATE: 20040121
